FAERS Safety Report 5355540-8 (Version None)
Quarter: 2007Q3

REPORT INFORMATION
  Report Type: 
  Country: None (occurrence: None)
  Receive Date: 20070530
  Receipt Date: 20061204
  Transmission Date: 20080115
  Serious: Yes (Hospitalization, Other)
  Sender: FDA-Public Use
  Company Number: US200609001477

PATIENT
  Age: 39 Year
  Sex: Male
  Weight: 81.6 kg

DRUGS (3)
  1. ZYPREXA [Suspect]
     Indication: DEPRESSION
     Dates: start: 19960101
  2. QUETIAPINE FUMARATE [Concomitant]
  3. LITHIUM CARBONATE [Concomitant]

REACTIONS (9)
  - ACETONAEMIA [None]
  - BLOOD CHOLESTEROL ABNORMAL [None]
  - BLOOD TRIGLYCERIDES INCREASED [None]
  - DIABETES MELLITUS [None]
  - DIABETIC KETOACIDOSIS [None]
  - HYPERTENSION [None]
  - KETONURIA [None]
  - METABOLIC DISORDER [None]
  - PANCREATITIS [None]
